FAERS Safety Report 5379139-2 (Version None)
Quarter: 2007Q3

REPORT INFORMATION
  Report Type: 
  Country: None (occurrence: None)
  Receive Date: 20070705
  Receipt Date: 20070629
  Transmission Date: 20080115
  Serious: Yes (Death, Other)
  Sender: FDA-Public Use
  Company Number: ES-BRISTOL-MYERS SQUIBB COMPANY-13270707

PATIENT
  Age: 47 Year
  Sex: Male
  Weight: 80 kg

DRUGS (4)
  1. SUSTIVA [Suspect]
     Indication: HIV INFECTION
     Route: 048
     Dates: start: 20051221, end: 20051224
  2. TRUVADA [Suspect]
     Indication: HIV INFECTION
     Dosage: 245/200 MG
     Route: 048
     Dates: start: 20051221, end: 20051224
  3. CIALIS [Concomitant]
  4. ANTIDEPRESSANT NOS [Concomitant]

REACTIONS (3)
  - HEPATITIS [None]
  - HEPATORENAL SYNDROME [None]
  - RENAL IMPAIRMENT [None]
